FAERS Safety Report 5473310-7 (Version None)
Quarter: 2007Q4

REPORT INFORMATION
  Report Type: 
  Country: None (occurrence: None)
  Receive Date: 20071001
  Receipt Date: 20070920
  Transmission Date: 20080405
  Serious: Yes (Hospitalization)
  Sender: FDA-Public Use
  Company Number: US-JNJFOC-20070705822

PATIENT
  Sex: Female
  Weight: 70.31 kg

DRUGS (6)
  1. DURAGESIC-100 [Suspect]
     Indication: PAIN
     Route: 062
  2. XANAX [Concomitant]
     Indication: MUSCLE RELAXANT THERAPY
     Route: 048
  3. ZOCOR [Concomitant]
     Indication: BLOOD CHOLESTEROL INCREASED
     Route: 048
  4. REGLAN [Concomitant]
     Indication: PHARYNGEAL ULCERATION
     Route: 048
  5. ZANAFLEX [Concomitant]
     Indication: RESTLESS LEGS SYNDROME
     Route: 048
  6. ELAVIL [Concomitant]
     Indication: INSOMNIA
     Route: 048

REACTIONS (5)
  - DRUG DISPENSING ERROR [None]
  - EXPIRED DRUG ADMINISTERED [None]
  - INSOMNIA [None]
  - OVARIAN CYST [None]
  - VOMITING [None]
